FAERS Safety Report 9685545 (Version 1)
Quarter: 2013Q4

REPORT INFORMATION
  Report Type: Spontaneous
  Country: US (occurrence: None)
  Receive Date: 20131112
  Receipt Date: 20131112
  Transmission Date: 20140711
  Serious: Yes (Life-Threatening)
  Sender: FDA-Public Use
  Company Number: None

PATIENT
  Age: 1 Month
  Sex: Female
  Weight: 102 kg

DRUGS (12)
  1. COMBIPATCH [Suspect]
  2. INVOKANA [Concomitant]
  3. CELEBREX [Concomitant]
  4. DEPAKOTE [Concomitant]
  5. DOXAZOSIN [Concomitant]
  6. CYMBALTA [Concomitant]
  7. DULERA [Concomitant]
  8. NEURONTIN [Concomitant]
  9. SINGULAR [Concomitant]
  10. ZYPREXA [Concomitant]
  11. OXYCONTIN [Concomitant]
  12. LEVOTHYROXINE [Concomitant]

REACTIONS (4)
  - Cardiac arrest [None]
  - Hypertension [None]
  - Unresponsive to stimuli [None]
  - Pulmonary embolism [None]
